FAERS Safety Report 9664661 (Version 1)
Quarter: 2013Q4

REPORT INFORMATION
  Report Type: Spontaneous
  Country: RO (occurrence: RO)
  Receive Date: 20131101
  Receipt Date: 20131101
  Transmission Date: 20140711
  Serious: Yes (Death, Hospitalization, Other)
  Sender: FDA-Public Use
  Company Number: RO-TEVA-440785ISR

PATIENT
  Age: 21 Year
  Sex: Female

DRUGS (4)
  1. LAMIVUDINE W/ ZIDOVUDINE [Suspect]
     Indication: HIV INFECTION
     Dates: start: 2004, end: 2011
  2. NEVIRAPINE [Suspect]
     Indication: HIV INFECTION
     Dates: start: 2004, end: 2004
  3. LOPINAVIR/RITONAVIR [Suspect]
  4. ENFUVIRTIDE [Suspect]
     Indication: HIV INFECTION

REACTIONS (11)
  - Disseminated tuberculosis [Fatal]
  - Meningitis tuberculous [Fatal]
  - Depressed level of consciousness [Unknown]
  - Disseminated tuberculosis [Fatal]
  - Encephalitis [Fatal]
  - Tuberculoma of central nervous system [Fatal]
  - Pulmonary oedema [Fatal]
  - Tubulointerstitial nephritis [Fatal]
  - Cardiomyopathy [Fatal]
  - Gastritis atrophic [Fatal]
  - Live birth [Unknown]
